FAERS Safety Report 17059942 (Version 1)
Quarter: 2019Q4

REPORT INFORMATION
  Report Type: Spontaneous
  Country: US (occurrence: US)
  Receive Date: 20191121
  Receipt Date: 20191121
  Transmission Date: 20200122
  Serious: No
  Sender: FDA-Public Use
  Company Number: US-NOVOPROD-672061

PATIENT
  Sex: Male

DRUGS (2)
  1. TRESIBA [Concomitant]
     Active Substance: INSULIN DEGLUDEC
     Indication: TYPE 2 DIABETES MELLITUS
     Dosage: 90 UNITS A DAY
     Route: 058
     Dates: start: 201811
  2. NOVOLOG [Suspect]
     Active Substance: INSULIN ASPART
     Indication: TYPE 2 DIABETES MELLITUS
     Dosage: 30 UNITS WITH SLIDING SCALE FOR CORRECTION
     Route: 058
     Dates: start: 2009

REACTIONS (1)
  - Pain in extremity [Unknown]
